FAERS Safety Report 5442045-9 (Version None)
Quarter: 2007Q3

REPORT INFORMATION
  Report Type: 
  Country: None (occurrence: None)
  Receive Date: 20070904
  Receipt Date: 20070827
  Transmission Date: 20080115
  Serious: Yes (Other)
  Sender: FDA-Public Use
  Company Number: JP-AVENTIS-200712009JP

PATIENT
  Sex: Male

DRUGS (2)
  1. LASIX [Suspect]
     Indication: RESPIRATORY DISORDER NEONATAL
     Dosage: DOSE: 1-3 MG/KG
     Route: 042
  2. UNKNOWN DRUG [Concomitant]

REACTIONS (1)
  - BILE DUCT STONE [None]
